FAERS Safety Report 4397549-7 (Version None)
Quarter: 2004Q3

REPORT INFORMATION
  Report Type: 
  Country: None (occurrence: None)
  Receive Date: 20040708
  Receipt Date: 20040621
  Transmission Date: 20050211
  Serious: Yes (Hospitalization)
  Sender: FDA-Public Use
  Company Number: APP200400575

PATIENT
  Age: 30 Year
  Sex: Female

DRUGS (4)
  1. PROFASI HP [Suspect]
     Indication: ASSISTED FERTILISATION
     Dosage: 10000 IU (10000 IU, ONCE, INJECTION
  2. MENOTROPHIN (MENOTROPHIN) [Suspect]
     Indication: INFERTILITY
     Dosage: 225 IU (225 IU, 1 IN 1 D), INTRAMUSCULAR
     Route: 030
  3. LEUPRORELIN ACETATE (LEUPRORELIN ACETATE) [Concomitant]
  4. PROGESTERONE [Concomitant]

REACTIONS (7)
  - ABORTION [None]
  - CAESAREAN SECTION [None]
  - ECTOPIC PREGNANCY [None]
  - FALLOPIAN TUBE DISORDER [None]
  - LIVE BIRTH [None]
  - MULTIPLE PREGNANCY [None]
  - PREMATURE BABY [None]
